FAERS Safety Report 12709575 (Version 2)
Quarter: 2016Q3

REPORT INFORMATION
  Report Type: Spontaneous
  Country: TR (occurrence: TR)
  Receive Date: 20160902
  Receipt Date: 20160906
  Transmission Date: 20161109
  Serious: Yes (Other)
  Sender: FDA-Public Use
  Company Number: TR-JNJFOC-20160827726

PATIENT
  Age: 45 Year
  Sex: Male

DRUGS (2)
  1. OXYBUTYNIN [Suspect]
     Active Substance: OXYBUTYNIN
     Indication: HYPERTONIC BLADDER
     Dosage: PRESCRIBED OXYBUTYNIN 10 YEARS PREVIOUSLY
     Route: 065
  2. OXYBUTYNIN [Suspect]
     Active Substance: OXYBUTYNIN
     Indication: HYPERTONIC BLADDER
     Dosage: INCREASED THE AMOUNT TO 60-80 TABLETS DAILY (300-400 MG)
     Route: 065

REACTIONS (2)
  - Dry mouth [Unknown]
  - Drug abuse [Unknown]
